FAERS Safety Report 5127067-X (Version None)
Quarter: 2006Q4

REPORT INFORMATION
  Report Type: 
  Country: None (occurrence: None)
  Receive Date: 20061013
  Receipt Date: 20061003
  Transmission Date: 20070319
  Serious: Yes (Other)
  Sender: FDA-Public Use
  Company Number: ES-JNJFOC-20060906254

PATIENT
  Age: 16 Year
  Sex: Female

DRUGS (3)
  1. TOPAMAX [Suspect]
     Indication: CONVULSION
  2. CARBAMAZEPINE [Concomitant]
     Indication: EPILEPSY
  3. HYDANTOIN [Concomitant]
     Indication: EPILEPSY

REACTIONS (5)
  - DRUG TOXICITY [None]
  - HEMIANOPIA HOMONYMOUS [None]
  - LETHARGY [None]
  - MENTAL IMPAIRMENT [None]
  - SPEECH DISORDER [None]
